FAERS Safety Report 8551049 (Version 4)
Quarter: 2013Q1

REPORT INFORMATION
  Report Type: Report from Study
  Country: DE (occurrence: DE)
  Receive Date: 20120508
  Receipt Date: 20130320
  Transmission Date: 20140127
  Serious: Yes (Other)
  Sender: FDA-Public Use
  Company Number: DE-CELGENEUS-062-20785-12050479

PATIENT
  Sex: 0

DRUGS (8)
  1. THALIDOMIDE [Suspect]
     Indication: PLASMA CELL MYELOMA
     Dosage: 200MG-50MG
     Route: 048
  2. MELPHALAN [Concomitant]
     Indication: PLASMA CELL MYELOMA
     Route: 065
  3. PREDNISONE [Concomitant]
     Indication: PLASMA CELL MYELOMA
     Route: 065
  4. BORTEZOMIB [Concomitant]
     Indication: PLASMA CELL MYELOMA
     Route: 065
  5. DEXAMETHASONE [Concomitant]
     Indication: PLASMA CELL MYELOMA
     Route: 065
  6. MARCUMAR [Concomitant]
     Indication: THROMBOSIS PROPHYLAXIS
     Route: 065
  7. ACETYLSALICYLIC ACID [Concomitant]
     Indication: THROMBOSIS PROPHYLAXIS
     Route: 065
  8. HEPARIN [Concomitant]
     Indication: THROMBOSIS PROPHYLAXIS
     Route: 058

REACTIONS (23)
  - Ventricular tachyarrhythmia [Unknown]
  - Cardiac disorder [Unknown]
  - Diabetes mellitus [Unknown]
  - Arrhythmia [Unknown]
  - Polyneuropathy [Unknown]
  - Bone marrow disorder [Unknown]
  - Hypersensitivity [Unknown]
  - General symptom [Unknown]
  - Angiopathy [Unknown]
  - Nervous system disorder [Unknown]
  - Gastrointestinal disorder [Unknown]
  - Eye disorder [Unknown]
  - Respiratory disorder [Unknown]
  - Skin disorder [Unknown]
  - Adverse event [Unknown]
  - Amyloidosis [Unknown]
  - Erectile dysfunction [Unknown]
  - Dry skin [Unknown]
  - Hyperhidrosis [Unknown]
  - Pain [Unknown]
  - Plasma cell myeloma [Unknown]
  - Dizziness [Unknown]
  - Lymphatic disorder [Unknown]
